FAERS Safety Report 8259206-6 (Version None)
Quarter: 2012Q2

REPORT INFORMATION
  Report Type: 
  Country: None (occurrence: None)
  Receive Date: 20120404
  Receipt Date: 20120402
  Transmission Date: 20120825
  Serious: Yes (Other)
  Sender: FDA-Public Use
  Company Number: US-PFIZER INC-2012063609

PATIENT
  Sex: Male
  Weight: 95 kg

DRUGS (6)
  1. LIPITOR [Suspect]
     Indication: BLOOD CHOLESTEROL INCREASED
     Dosage: 40 MG, 1X/DAY
     Route: 048
  2. LOSARTAN [Concomitant]
     Dosage: 25 MG, UNK
  3. ASPIRIN [Concomitant]
     Dosage: 81 MG, UNK
  4. GLIMEPIRIDE [Concomitant]
     Dosage: 2 MG, UNK
  5. MULTI-VITAMINS [Concomitant]
     Dosage: UNK, 1X/DAY
  6. METOPROLOL [Concomitant]
     Dosage: 25 MG, UNK

REACTIONS (1)
  - MYOCARDIAL INFARCTION [None]
